FAERS Safety Report 8558030-4 (Version None)
Quarter: 2012Q3

REPORT INFORMATION
  Report Type: 
  Country: None (occurrence: None)
  Receive Date: 20120801
  Receipt Date: 20120727
  Transmission Date: 20120928
  Serious: Yes (Hospitalization)
  Sender: FDA-Public Use
  Company Number: FR-PFIZER INC-2012171555

PATIENT
  Age: 67 Year
  Sex: Male
  Weight: 59.4 kg

DRUGS (8)
  1. ALODONT [Concomitant]
     Indication: INFECTION PROPHYLAXIS
     Dosage: 2 BATHES/DAY
     Route: 002
     Dates: start: 20120702
  2. LOPERAMIDE [Concomitant]
     Indication: DIARRHOEA
     Dosage: 2 MG, EVERY 4 HRS (6X/DAY)
     Route: 048
     Dates: start: 20120707
  3. CHONDROSULF [Concomitant]
     Indication: OSTEOARTHRITIS
     Dosage: 400 MG DAILY
     Route: 048
     Dates: start: 20020101
  4. FLUCONAZOLE [Concomitant]
     Indication: INFECTION PROPHYLAXIS
     Dosage: 2 BATHES, DAILY
     Route: 002
     Dates: start: 20120709, end: 20120714
  5. AXITINIB [Suspect]
     Indication: HEPATIC NEOPLASM MALIGNANT
     Dosage: 5 MG, 2X/DAY
     Route: 048
     Dates: start: 20120531, end: 20120613
  6. AXITINIB [Suspect]
     Dosage: 10 MG, 2X/DAY
     Dates: start: 20120628
  7. FIXICAL [Concomitant]
     Indication: CALCIUM DEFICIENCY
     Dosage: 500 MG DAILY
     Route: 048
     Dates: start: 20040101
  8. AXITINIB [Suspect]
     Dosage: 7 MG, 2X/DAY
     Route: 048
     Dates: start: 20120614, end: 20120627

REACTIONS (1)
  - DIARRHOEA [None]
